FAERS Safety Report 7313819-4 (Version None)
Quarter: 2011Q1

REPORT INFORMATION
  Report Type: 
  Country: None (occurrence: None)
  Receive Date: 20110215
  Receipt Date: 20110202
  Transmission Date: 20110831
  Serious: Yes (Other)
  Sender: FDA-Public Use
  Company Number: 20110099

PATIENT
  Age: 34 Year
  Sex: Female

DRUGS (1)
  1. DEXAMETHASONE SODIUM PHOSPHATE INJECTION, USP [Suspect]
     Indication: ARTHRALGIA
     Dosage: 4 MG/ML ONCE INJECTION NOS
     Dates: start: 20040329, end: 20040329

REACTIONS (3)
  - PAIN [None]
  - INCISIONAL DRAINAGE [None]
  - PRODUCT CONTAMINATION PHYSICAL [None]
